FAERS Safety Report 6115723-6 (Version None)
Quarter: 2009Q1

REPORT INFORMATION
  Report Type: 
  Country: None (occurrence: None)
  Receive Date: 20090313
  Receipt Date: 20090303
  Transmission Date: 20090719
  Serious: Yes (Hospitalization, Other)
  Sender: FDA-Public Use
  Company Number: US-ABBOTT-09P-163-0502059-00

PATIENT
  Sex: Female
  Weight: 78.996 kg

DRUGS (6)
  1. HUMIRA [Suspect]
     Indication: CROHN'S DISEASE
     Route: 058
     Dates: start: 20090105, end: 20090217
  2. HUMIRA [Suspect]
     Indication: ARTHRITIS ENTEROPATHIC
  3. VALIUM [Concomitant]
     Indication: ANXIETY
  4. TRAZODONE HCL [Concomitant]
     Indication: INSOMNIA
  5. DOXAPIN [Concomitant]
     Indication: PSORIASIS
  6. MORPHINE [Concomitant]
     Indication: PAIN

REACTIONS (6)
  - ARTHRITIS [None]
  - ASTHENIA [None]
  - BRONCHITIS [None]
  - FATIGUE [None]
  - PANCREATITIS [None]
  - STAPHYLOCOCCAL INFECTION [None]
